FAERS Safety Report 23391864 (Version 2)
Quarter: 2024Q1

REPORT INFORMATION
  Report Type: Report from Study
  Country: US (occurrence: US)
  Receive Date: 20240111
  Receipt Date: 20240209
  Transmission Date: 20240410
  Serious: Yes (Death)
  Sender: FDA-Public Use
  Company Number: US-ALNYLAM PHARMACEUTICALS, INC.-ALN-2024-000163

PATIENT

DRUGS (29)
  1. ONPATTRO [Suspect]
     Active Substance: PATISIRAN SODIUM
     Indication: Cardiac amyloidosis
     Dosage: 20 MILLIGRAM, Q3W
     Route: 042
     Dates: start: 20230725, end: 20230725
  2. ONPATTRO [Suspect]
     Active Substance: PATISIRAN SODIUM
     Dosage: 21.2 MILLIGRAM, Q3W
     Route: 042
     Dates: start: 20231017, end: 20231017
  3. DEXAMETHASONE [Concomitant]
     Active Substance: DEXAMETHASONE
     Indication: Premedication
     Dosage: 10 MILLIGRAM
     Route: 042
  4. FAMOTIDINE [Concomitant]
     Active Substance: FAMOTIDINE
     Indication: Premedication
     Dosage: 20 MILLIGRAM
     Route: 042
  5. DIPHENHYDRAMINE [Concomitant]
     Active Substance: DIPHENHYDRAMINE
     Indication: Premedication
     Dosage: 50 MILLIGRAM
     Route: 048
  6. ACETAMINOPHEN [Concomitant]
     Active Substance: ACETAMINOPHEN
     Indication: Premedication
     Dosage: 500 MILLIGRAM
     Route: 048
  7. ALBUTEROL SULFATE [Concomitant]
     Active Substance: ALBUTEROL SULFATE
     Indication: Dyspnoea
     Dosage: 90 MICROGRAM (2 PUFFS), Q4H
     Dates: start: 20221011, end: 20231119
  8. ALBUTEROL SULFATE [Concomitant]
     Active Substance: ALBUTEROL SULFATE
     Indication: Wheezing
  9. ALBUTEROL SULFATE [Concomitant]
     Active Substance: ALBUTEROL SULFATE
     Indication: Chronic obstructive pulmonary disease
  10. ASPIRIN [Concomitant]
     Active Substance: ASPIRIN
     Indication: Cardiac failure
     Dosage: 81 MILLIGRAM (1 TABLET), QD
     Route: 048
     Dates: end: 20231119
  11. VITAMIN B12 [Concomitant]
     Active Substance: CYANOCOBALAMIN
     Indication: Supplementation therapy
     Dosage: 100 MICROGRAM (1 TABLET), QD
     Route: 048
     Dates: end: 20231119
  12. TRELEGY ELLIPTA [Concomitant]
     Active Substance: FLUTICASONE FUROATE\UMECLIDINIUM BROMIDE\VILANTEROL TRIFENATATE
     Indication: Chronic obstructive pulmonary disease
     Dosage: (100- 62.5- 25MCG) 1 PUFF, QD
     Route: 048
     Dates: start: 20221011, end: 20231119
  13. METOPROLOL SUCCINATE [Concomitant]
     Active Substance: METOPROLOL SUCCINATE
     Indication: Cardiac failure
     Dosage: 25 MILLIGRAM (0.5 TABLET), QD
     Route: 048
     Dates: start: 20210623, end: 20231119
  14. METOPROLOL SUCCINATE [Concomitant]
     Active Substance: METOPROLOL SUCCINATE
     Indication: Supraventricular tachycardia
  15. PANTOPRAZOLE [Concomitant]
     Active Substance: PANTOPRAZOLE
     Indication: Product used for unknown indication
     Dosage: 40 MILLIGRAM, PRN
     Route: 048
     Dates: start: 20210623, end: 20231119
  16. TORSEMIDE [Concomitant]
     Active Substance: TORSEMIDE
     Indication: Cardiac failure
     Dosage: 10 MILLIGRAM (5 TABLETS DAILY), QD
     Route: 048
     Dates: start: 20220916, end: 20231119
  17. VITAMINS [Concomitant]
     Active Substance: VITAMINS
     Indication: Supplementation therapy
     Dosage: 1 DOSAGE FORM, QD
     Route: 048
     Dates: start: 20230725, end: 20231119
  18. DIURIL [Concomitant]
     Active Substance: CHLOROTHIAZIDE
     Indication: Pleural effusion
     Dosage: UNK
     Route: 065
  19. DIURIL [Concomitant]
     Active Substance: CHLOROTHIAZIDE
     Indication: Pulmonary oedema
  20. TRIDIL [Concomitant]
     Active Substance: NITROGLYCERIN
     Indication: Pleural effusion
     Dosage: UNK
     Route: 065
  21. TRIDIL [Concomitant]
     Active Substance: NITROGLYCERIN
     Indication: Pulmonary oedema
  22. LASIX [Concomitant]
     Active Substance: FUROSEMIDE
     Indication: Pleural effusion
     Dosage: 80 MILLIGRAM
     Route: 042
     Dates: start: 20231027
  23. LASIX [Concomitant]
     Active Substance: FUROSEMIDE
     Indication: Pulmonary oedema
  24. MEROPENEM [Concomitant]
     Active Substance: MEROPENEM
     Indication: Pleural effusion
     Dosage: UNK
     Route: 065
     Dates: end: 20231117
  25. MEROPENEM [Concomitant]
     Active Substance: MEROPENEM
     Indication: Pulmonary oedema
  26. VANCOMYCIN [Concomitant]
     Active Substance: VANCOMYCIN
     Indication: Pleural effusion
     Dosage: 1000 MILLIGRAM, BID
     Route: 065
     Dates: end: 20231113
  27. VANCOMYCIN [Concomitant]
     Active Substance: VANCOMYCIN
     Indication: Pulmonary oedema
  28. ALBUTEROL\IPRATROPIUM [Concomitant]
     Active Substance: ALBUTEROL\IPRATROPIUM
     Indication: Pleural effusion
     Dosage: 0.5 MG/2.5 MG/3ML NEBULIZER EVERY 4 HOURS
     Route: 065
     Dates: start: 20231027, end: 20231119
  29. ALBUTEROL\IPRATROPIUM [Concomitant]
     Active Substance: ALBUTEROL\IPRATROPIUM
     Indication: Pulmonary oedema

REACTIONS (1)
  - Death [Fatal]

NARRATIVE: CASE EVENT DATE: 20231119
